FAERS Safety Report 8889357 (Version 1)
Quarter: 2012Q4

REPORT INFORMATION
  Report Type: Spontaneous
  Country: US (occurrence: None)
  Receive Date: 20121102
  Receipt Date: 20121102
  Transmission Date: 20130627
  Serious: Yes (Other)
  Sender: FDA-Public Use
  Company Number: None

PATIENT
  Age: 68 Year
  Sex: Female
  Weight: 56.25 kg

DRUGS (1)
  1. ATORVASTATIN [Suspect]
     Indication: HYPERCHOLESTEREMIA
     Dosage: One Tab Daily Oropharingeal
     Route: 049
     Dates: start: 20121010, end: 20121014

REACTIONS (4)
  - Muscle spasms [None]
  - Muscle spasms [None]
  - Product substitution issue [None]
  - Sleep disorder [None]
